FAERS Safety Report 13897990 (Version 1)
Quarter: 2017Q3

REPORT INFORMATION
  Report Type: Spontaneous
  Country: CN (occurrence: CN)
  Receive Date: 20170823
  Receipt Date: 20170823
  Transmission Date: 20171127
  Serious: Yes (Other)
  Sender: FDA-Public Use
  Company Number: CN-SA-2017SA154508

PATIENT
  Age: 44 Year
  Sex: Male
  Weight: 61 kg

DRUGS (1)
  1. ELOXATIN [Suspect]
     Active Substance: OXALIPLATIN
     Indication: PROPHYLAXIS
     Route: 041
     Dates: start: 20170523, end: 20170523

REACTIONS (2)
  - Asphyxia [Recovered/Resolved]
  - Pruritus [Recovered/Resolved]

NARRATIVE: CASE EVENT DATE: 20170523
